FAERS Safety Report 4627847-0 (Version None)
Quarter: 2005Q2

REPORT INFORMATION
  Report Type: 
  Country: None (occurrence: None)
  Receive Date: 20050401
  Receipt Date: 20050322
  Transmission Date: 20051028
  Serious: No
  Sender: FDA-Public Use
  Company Number: 2005PK00499

PATIENT
  Age: 41 Year
  Sex: Female

DRUGS (2)
  1. NEXIUM [Suspect]
     Indication: GASTRIC DISORDER
     Dates: start: 20050221
  2. AGOPTON [Suspect]
     Dates: start: 20050201

REACTIONS (4)
  - HEPATIC ENZYME INCREASED [None]
  - JAUNDICE [None]
  - LIPID METABOLISM DISORDER [None]
  - NAUSEA [None]
